FAERS Safety Report 17067729 (Version 1)
Quarter: 2019Q4

REPORT INFORMATION
  Report Type: Spontaneous
  Country: JP (occurrence: JP)
  Receive Date: 20191122
  Receipt Date: 20191122
  Transmission Date: 20200122
  Serious: Yes (Other)
  Sender: FDA-Public Use
  Company Number: NVSJ2019JP002049

PATIENT
  Age: 69 Year
  Sex: Female

DRUGS (2)
  1. DENOSUMAB [Concomitant]
     Active Substance: DENOSUMAB
     Indication: NEOPLASM MALIGNANT
     Dosage: UNK
     Route: 065
  2. ZOLEDRONIC ACID [Suspect]
     Active Substance: ZOLEDRONIC ACID
     Indication: NEOPLASM MALIGNANT
     Dosage: UNK
     Route: 065

REACTIONS (1)
  - Osteonecrosis of jaw [Unknown]
